FAERS Safety Report 5848259-8 (Version None)
Quarter: 2008Q3

REPORT INFORMATION
  Report Type: 
  Country: None (occurrence: None)
  Receive Date: 20080818
  Receipt Date: 20080812
  Transmission Date: 20090109
  Serious: Yes (Hospitalization, Disabling)
  Sender: FDA-Public Use
  Company Number: US-JNJFOC-20061201443

PATIENT
  Sex: Female
  Weight: 68.04 kg

DRUGS (4)
  1. ORTHO EVRA [Suspect]
     Indication: CONTRACEPTION
     Route: 062
     Dates: start: 20050415, end: 20060201
  2. MOTRIN [Concomitant]
     Indication: DRUG USE FOR UNKNOWN INDICATION
  3. VICODIN [Concomitant]
     Indication: DRUG USE FOR UNKNOWN INDICATION
  4. NICODERM [Concomitant]

REACTIONS (13)
  - AREFLEXIA [None]
  - CONVULSION [None]
  - DIALYSIS [None]
  - FALL [None]
  - HYPERCOAGULATION [None]
  - INCORRECT DOSE ADMINISTERED [None]
  - INTRACRANIAL VENOUS SINUS THROMBOSIS [None]
  - LEUKOENCEPHALOPATHY [None]
  - MULTI-ORGAN FAILURE [None]
  - PLEURAL EFFUSION [None]
  - PULMONARY OEDEMA [None]
  - RENAL FAILURE ACUTE [None]
  - THROMBOPHLEBITIS SEPTIC [None]
